FAERS Safety Report 4706260-1 (Version None)
Quarter: 2005Q2

REPORT INFORMATION
  Report Type: 
  Country: None (occurrence: None)
  Receive Date: 20050629
  Receipt Date: 20050418
  Transmission Date: 20051028
  Serious: No
  Sender: FDA-Public Use
  Company Number: 05P-163-0297888-00

PATIENT
  Age: 62 Year
  Sex: Female

DRUGS (13)
  1. HUMIRA [Suspect]
     Indication: RHEUMATOID ARTHRITIS
     Dosage: 40 MG, 1 IN 2 WK, SUBCUTANEOUS
     Route: 058
     Dates: start: 20041001, end: 20050201
  2. METHOTREXATE [Concomitant]
  3. ESOMEPRAZOLE [Concomitant]
  4. FOLIC ACID [Concomitant]
  5. ALENDRONATE SODIUM [Concomitant]
  6. NARINE REPETABS [Concomitant]
  7. DIPYRIDAMOLE [Concomitant]
  8. AMLODIPINE BESILATE [Concomitant]
  9. TRIAM HYDROCHLOROTHIAZIDE [Concomitant]
  10. ZOCOR [Concomitant]
  11. TOCOPHEROL CONCENTRATE CAP [Concomitant]
  12. CENTRUM [Concomitant]
  13. CALCIUM D3 ^STADA^ [Concomitant]

REACTIONS (1)
  - DRUG INEFFECTIVE [None]
